FAERS Safety Report 10077845 (Version 1)
Quarter: 2014Q2

REPORT INFORMATION
  Report Type: Spontaneous
  Country: US (occurrence: US)
  Receive Date: 20140414
  Receipt Date: 20140414
  Transmission Date: 20141212
  Serious: No
  Sender: FDA-Public Use
  Company Number: US-009507513-1404USA001073

PATIENT
  Age: 19 Year
  Sex: Female
  Weight: 89.8 kg

DRUGS (1)
  1. ETONOGESTREL IMPLANT- UNKNOWN [Suspect]
     Indication: CONTRACEPTION
     Dosage: UNK
     Route: 059
     Dates: start: 201203

REACTIONS (3)
  - Pain in extremity [Unknown]
  - Device breakage [Unknown]
  - Product quality issue [Unknown]
